FAERS Safety Report 25470723 (Version 1)
Quarter: 2025Q2

REPORT INFORMATION
  Report Type: Spontaneous
  Country: IT (occurrence: IT)
  Receive Date: 20250624
  Receipt Date: 20250624
  Transmission Date: 20250717
  Serious: Yes (Hospitalization)
  Sender: BEIGENE
  Company Number: None

PATIENT
  Age: 74 Year

DRUGS (1)
  1. BRUKINSA [Suspect]
     Active Substance: ZANUBRUTINIB
     Indication: Chronic lymphocytic leukaemia

REACTIONS (5)
  - Presyncope [Unknown]
  - Renal failure [Recovering/Resolving]
  - Pyrexia [Recovered/Resolved]
  - Chromaturia [Unknown]
  - Anaemia [Recovering/Resolving]
